FAERS Safety Report 20859432 (Version 3)
Quarter: 2022Q3

REPORT INFORMATION
  Report Type: Report from Study
  Country: US (occurrence: US)
  Receive Date: 20220523
  Receipt Date: 20220922
  Transmission Date: 20221027
  Serious: Yes (Life-Threatening, Hospitalization)
  Sender: FDA-Public Use
  Company Number: US-NOVARTISPH-NVSC2022US089359

PATIENT
  Age: 63 Year
  Sex: Female
  Weight: 73.2 kg

DRUGS (52)
  1. LUTATHERA [Suspect]
     Active Substance: LUTETIUM OXODOTREOTIDE LU-177
     Indication: Neuroendocrine tumour
     Dosage: 200 MCI (FULL DOSE)
     Route: 042
     Dates: start: 20191105
  2. LUTATHERA [Suspect]
     Active Substance: LUTETIUM OXODOTREOTIDE LU-177
     Dosage: 200 MCI (FULL DOSE)
     Route: 042
     Dates: start: 20200107
  3. LUTATHERA [Suspect]
     Active Substance: LUTETIUM OXODOTREOTIDE LU-177
     Dosage: 200 MCI (FULL DOSE)
     Route: 042
     Dates: start: 20200306
  4. LUTATHERA [Suspect]
     Active Substance: LUTETIUM OXODOTREOTIDE LU-177
     Dosage: 200 MCI (FULL DOSE)
     Route: 042
     Dates: start: 20200506, end: 20220506
  5. SANDOSTATIN [Concomitant]
     Active Substance: OCTREOTIDE ACETATE
     Indication: Neuroendocrine tumour
     Dosage: UNK
     Route: 058
     Dates: start: 201203, end: 2019
  6. ONDANSETRON [Concomitant]
     Active Substance: ONDANSETRON
     Indication: Nausea
     Dosage: UNK
     Route: 048
     Dates: start: 20151028
  7. ONDANSETRON [Concomitant]
     Active Substance: ONDANSETRON
     Indication: Vomiting
  8. LISINOPRIL [Concomitant]
     Active Substance: LISINOPRIL
     Indication: Hypertension
     Dosage: UNK
     Route: 048
     Dates: start: 20151201, end: 20210212
  9. ACETAMINOPHEN [Concomitant]
     Active Substance: ACETAMINOPHEN
     Indication: Pain
     Dosage: UNK
     Route: 048
     Dates: start: 20151228
  10. ATROPINE SULFATE\DIPHENOXYLATE HYDROCHLORIDE [Concomitant]
     Active Substance: ATROPINE SULFATE\DIPHENOXYLATE HYDROCHLORIDE
     Indication: Diarrhoea
     Dosage: UNK
     Route: 048
     Dates: start: 20161111
  11. LIDOCAINE [Concomitant]
     Active Substance: LIDOCAINE
     Indication: Pain
     Dosage: UNK
     Route: 062
     Dates: start: 20170201, end: 20200706
  12. OXYCODONE [Concomitant]
     Active Substance: OXYCODONE
     Indication: Breakthrough pain
     Dosage: UNK
     Route: 048
     Dates: start: 20170202
  13. SENNA [Concomitant]
     Active Substance: SENNA LEAF\SENNOSIDES\SENNOSIDES A AND B
     Indication: Constipation
     Dosage: UNK
     Route: 048
     Dates: start: 20170301
  14. ASPIRIN [Concomitant]
     Active Substance: ASPIRIN
     Indication: Anticoagulant therapy
     Dosage: UNK
     Route: 048
     Dates: start: 2019
  15. ATORVASTATIN [Concomitant]
     Active Substance: ATORVASTATIN
     Indication: Blood cholesterol increased
     Dosage: UNK
     Route: 048
     Dates: start: 2019
  16. PRASUGREL [Concomitant]
     Active Substance: PRASUGREL
     Indication: Anticoagulant therapy
     Dosage: UNK
     Route: 048
     Dates: start: 20190815, end: 20210221
  17. ZOFRAN [Concomitant]
     Active Substance: ONDANSETRON HYDROCHLORIDE
     Indication: Nausea
     Dosage: UNK
     Route: 048
     Dates: start: 20200107
  18. LABETALOL [Concomitant]
     Active Substance: LABETALOL\LABETALOL HYDROCHLORIDE
     Indication: Hypertension
     Dosage: UNK
     Route: 042
     Dates: start: 20200317, end: 20200317
  19. DEXAMETHASONE [Concomitant]
     Active Substance: DEXAMETHASONE
     Indication: Enteritis
     Dosage: UNK
     Route: 048
     Dates: start: 20200504, end: 20211008
  20. LORAZEPAM [Concomitant]
     Active Substance: LORAZEPAM
     Indication: Anxiety
     Dosage: UNK
     Route: 048
     Dates: start: 20200512
  21. LORAZEPAM [Concomitant]
     Active Substance: LORAZEPAM
     Indication: Nausea
     Dosage: UNK
     Route: 048
     Dates: start: 20200520
  22. PEPCID [Concomitant]
     Active Substance: FAMOTIDINE
     Indication: Nausea
     Dosage: UNK
     Route: 048
     Dates: start: 20200512
  23. REGLAN [Concomitant]
     Active Substance: METOCLOPRAMIDE HYDROCHLORIDE
     Indication: Nausea
     Dosage: UNK
     Route: 048
     Dates: start: 20200512
  24. SSD [Concomitant]
     Active Substance: SILVER SULFADIAZINE
     Indication: Antibiotic therapy
     Dosage: UNK
     Route: 061
     Dates: start: 20200514
  25. METOPROLOL SUCCINATE [Concomitant]
     Active Substance: METOPROLOL SUCCINATE
     Indication: Hypertension
     Dosage: UNK
     Route: 048
     Dates: start: 20200516
  26. CHOLECALCIFEROL [Concomitant]
     Active Substance: CHOLECALCIFEROL
     Indication: Nutritional supplementation
     Dosage: UNK
     Route: 048
     Dates: start: 20200520
  27. FENTANYL [Concomitant]
     Active Substance: FENTANYL
     Indication: Pain
     Dosage: UNK
     Route: 042
     Dates: start: 20200522, end: 20220225
  28. FENTANYL [Concomitant]
     Active Substance: FENTANYL
     Dosage: UNK
     Route: 062
     Dates: start: 20200608
  29. VESICARE [Concomitant]
     Active Substance: SOLIFENACIN SUCCINATE
     Indication: Hypertonic bladder
     Dosage: UNK
     Route: 048
     Dates: start: 20200525, end: 20200525
  30. TORADOL [Concomitant]
     Active Substance: KETOROLAC TROMETHAMINE
     Indication: Pain
     Dosage: UNK
     Route: 058
     Dates: start: 20200525, end: 20200529
  31. HEPARIN [Concomitant]
     Active Substance: HEPARIN SODIUM
     Indication: Thrombosis
     Dosage: UNK
     Route: 042
     Dates: start: 20200528, end: 20211227
  32. EPINEPHRINE [Concomitant]
     Active Substance: EPINEPHRINE
     Indication: Infusion related reaction
     Dosage: UNK
     Route: 030
     Dates: start: 20200609
  33. GUAR [Concomitant]
     Indication: Nutritional supplementation
     Dosage: UNK
     Route: 048
     Dates: start: 20200611
  34. CALCIUM [Concomitant]
     Active Substance: CALCIUM
     Indication: Prophylaxis
     Dosage: UNK
     Route: 048
     Dates: start: 20200612
  35. ASCORBIC ACID [Concomitant]
     Active Substance: ASCORBIC ACID
     Indication: Nutritional supplementation
     Dosage: UNK
     Route: 048
     Dates: start: 20200706
  36. FERROUS SULFATE [Concomitant]
     Active Substance: FERROUS SULFATE
     Indication: Nutritional supplementation
     Dosage: UNK
     Route: 048
     Dates: start: 20200706
  37. FAMOTIDINE [Concomitant]
     Active Substance: FAMOTIDINE
     Indication: Dyspepsia
     Dosage: UNK
     Route: 048
     Dates: start: 20201122
  38. OXYBUTYNIN [Concomitant]
     Active Substance: OXYBUTYNIN
     Indication: Bladder spasm
     Dosage: UNK
     Route: 048
     Dates: start: 20201221, end: 20210222
  39. ROBAXIN [Concomitant]
     Active Substance: METHOCARBAMOL
     Indication: Nausea
     Dosage: UNK
     Route: 048
     Dates: start: 20210512
  40. AMLODIPINE [Concomitant]
     Active Substance: AMLODIPINE BESYLATE
     Indication: Hypertension
     Dosage: UNK
     Route: 048
     Dates: start: 20210603
  41. FLUTICASONE PROPIONATE [Concomitant]
     Active Substance: FLUTICASONE PROPIONATE
     Indication: Hypersensitivity
     Dosage: UNK
     Route: 045
     Dates: start: 20210614
  42. LANREOTIDE [Concomitant]
     Active Substance: LANREOTIDE
     Indication: Gastroenteropancreatic neuroendocrine tumour disease
     Dosage: UNK
     Route: 058
     Dates: start: 20210614
  43. SOLIFENACIN [Concomitant]
     Active Substance: SOLIFENACIN
     Indication: Bladder spasm
     Dosage: UNK
     Route: 048
     Dates: start: 20210621
  44. ACETAMINOPHEN\BUTALBITAL\CAFFEINE [Concomitant]
     Active Substance: ACETAMINOPHEN\BUTALBITAL\CAFFEINE
     Indication: Headache
     Dosage: UNK
     Route: 048
     Dates: start: 20210805
  45. HYOSCYAMINE [Concomitant]
     Active Substance: HYOSCYAMINE
     Indication: Abdominal pain
     Dosage: UNK
     Route: 048
     Dates: start: 20210805
  46. IPRATROPIUM [Concomitant]
     Active Substance: IPRATROPIUM
     Indication: Seasonal allergy
     Dosage: UNK
     Route: 045
     Dates: start: 20210805
  47. MECLIZINE [Concomitant]
     Active Substance: MECLIZINE HYDROCHLORIDE
     Indication: Vertigo
     Dosage: UNK
     Route: 048
     Dates: start: 20210805
  48. CHOLESTYRAMINE [Concomitant]
     Active Substance: CHOLESTYRAMINE
     Indication: Blood cholesterol increased
     Dosage: UNK
     Route: 048
     Dates: start: 20210810
  49. NITROGLYCERIN [Concomitant]
     Active Substance: NITROGLYCERIN
     Indication: Chest pain
     Dosage: UNK
     Route: 048
     Dates: start: 20210810
  50. HYDROMORPHONE [Concomitant]
     Active Substance: HYDROMORPHONE
     Indication: Pain
     Dosage: UNK
     Route: 048
     Dates: start: 20210813
  51. GABAPENTIN [Concomitant]
     Active Substance: GABAPENTIN
     Indication: Pain
     Dosage: UNK
     Route: 048
     Dates: start: 20220321
  52. EVEROLIMUS [Concomitant]
     Active Substance: EVEROLIMUS
     Indication: Product used for unknown indication
     Dosage: UNK
     Route: 048
     Dates: start: 20220401

REACTIONS (6)
  - Urinary tract infection [Recovered/Resolved]
  - Septic shock [Recovered/Resolved]
  - Ileus [Recovered/Resolved]
  - Urinary tract infection [Not Recovered/Not Resolved]
  - Pelvic pain [Not Recovered/Not Resolved]
  - Groin pain [Not Recovered/Not Resolved]

NARRATIVE: CASE EVENT DATE: 20200520
